FAERS Safety Report 4429618-7 (Version None)
Quarter: 2004Q3

REPORT INFORMATION
  Report Type: 
  Country: None (occurrence: None)
  Receive Date: 20040819
  Receipt Date: 20040817
  Transmission Date: 20050211
  Serious: Yes (Death)
  Sender: FDA-Public Use
  Company Number: 04-08-1183

PATIENT
  Age: 45 Year
  Sex: Male

DRUGS (1)
  1. CLOZAPINE [Suspect]
     Indication: SCHIZOPHRENIA
     Dosage: 450-600MG QD ORAL
     Route: 048
     Dates: start: 19991201, end: 20040801

REACTIONS (3)
  - BLOOD TEST ABNORMAL [None]
  - CARCINOMA [None]
  - PNEUMONIA [None]
